FAERS Safety Report 19926572 (Version 2)
Quarter: 2021Q4

REPORT INFORMATION
  Report Type: Report from Study
  Country: US (occurrence: US)
  Receive Date: 20211006
  Receipt Date: 20211019
  Transmission Date: 20220303
  Serious: Yes (Hospitalization, Other)
  Sender: FDA-Public Use
  Company Number: US-TEVA-2021-US-1961076

PATIENT

DRUGS (4)
  1. OCTREOTIDE [Suspect]
     Active Substance: OCTREOTIDE
     Indication: Hepatorenal syndrome
     Dosage: 300 MICROGRAM DAILY;
     Route: 058
  2. NOREPINEPHRINE [Suspect]
     Active Substance: NOREPINEPHRINE
     Indication: Hepatorenal syndrome
     Dosage: INFUSION OF 5 MICROG/MIN
     Route: 050
  3. MIDODRINE [Suspect]
     Active Substance: MIDODRINE
     Indication: Hepatorenal syndrome
     Route: 048
  4. ALBUMIN HUMAN [Concomitant]
     Active Substance: ALBUMIN HUMAN
     Indication: Product used for unknown indication
     Dosage: 25 GRAM DAILY;
     Route: 065

REACTIONS (3)
  - Myocardial ischaemia [Unknown]
  - Ventricular tachycardia [Unknown]
  - Therapy non-responder [Unknown]
